FAERS Safety Report 5954042-5 (Version None)
Quarter: 2008Q4

REPORT INFORMATION
  Report Type: 
  Country: None (occurrence: None)
  Receive Date: 20081114
  Receipt Date: 20081106
  Transmission Date: 20090506
  Serious: Yes (Other)
  Sender: FDA-Public Use
  Company Number: AU-AMGEN-US318243

PATIENT

DRUGS (1)
  1. ENBREL [Suspect]
     Indication: RHEUMATOID ARTHRITIS
     Dosage: UNKNOWN
     Route: 065
     Dates: start: 20081001

REACTIONS (4)
  - DIZZINESS [None]
  - PAPILLOEDEMA [None]
  - VISION BLURRED [None]
  - VITH NERVE PARALYSIS [None]
